FAERS Safety Report 5638747-1 (Version None)
Quarter: 2008Q1

REPORT INFORMATION
  Report Type: 
  Country: None (occurrence: None)
  Receive Date: 20080226
  Receipt Date: 20080215
  Transmission Date: 20080703
  Serious: Yes (Other)
  Sender: FDA-Public Use
  Company Number: US-JNJFOC-20080203998

PATIENT
  Sex: Female
  Weight: 102.06 kg

DRUGS (16)
  1. FENTANYL TRANSDERMAL SYSTEM [Suspect]
     Indication: PAIN
     Route: 062
  2. BENADRYL [Concomitant]
     Indication: MULTIPLE ALLERGIES
     Route: 048
  3. LEVOXYL [Concomitant]
     Route: 048
  4. ACTOS [Concomitant]
     Indication: DIABETES MELLITUS
     Route: 048
  5. GLUCOPHAGE [Concomitant]
     Indication: DIABETES MELLITUS
     Route: 048
  6. STARLIX [Concomitant]
     Indication: DIABETES MELLITUS
     Route: 048
  7. DIOVAN [Concomitant]
     Route: 048
  8. PROTONIX [Concomitant]
     Route: 048
  9. NORVASC [Concomitant]
     Route: 048
  10. LIPITOR [Concomitant]
     Indication: BLOOD CHOLESTEROL
     Route: 048
  11. PANCREASE [Concomitant]
     Indication: PANCREATITIS
     Route: 048
  12. POTASSIUM CHLORIDE [Concomitant]
     Route: 048
  13. TRILEPTAL [Concomitant]
     Indication: PAIN
     Route: 048
  14. SOMA [Concomitant]
     Indication: PAIN
     Route: 048
  15. BUSPAR [Concomitant]
     Indication: ANXIETY
     Route: 048
  16. PROZAC [Concomitant]
     Indication: DEPRESSION
     Route: 048

REACTIONS (3)
  - COUGH [None]
  - DYSPNOEA [None]
  - WHEEZING [None]
